FAERS Safety Report 4775486-3 (Version None)
Quarter: 2005Q3

REPORT INFORMATION
  Report Type: 
  Country: None (occurrence: None)
  Receive Date: 20050920
  Receipt Date: 20050914
  Transmission Date: 20060218
  Serious: Yes (Hospitalization, Other)
  Sender: FDA-Public Use
  Company Number: HQWYE387111NOV04

PATIENT
  Age: 65 Year
  Sex: Male

DRUGS (18)
  1. TACROLIMUS, CONTROL FOR SIROLIMUS  (TACROLIMUS, [Suspect]
     Indication: PROPHYLAXIS AGAINST TRANSPLANT REJECTION
     Dosage: 5 MG 2X PER 1 DAY, ORAL
     Route: 048
     Dates: start: 20041103
  2. CELLCEPT [Concomitant]
  3. PREDNISONE [Concomitant]
  4. IMDUR [Concomitant]
  5. FOSINOPRIL SODIUM [Concomitant]
  6. CALCITRIOL [Concomitant]
  7. NORVASC [Concomitant]
  8. RENAGEL (SEVELAMER) [Concomitant]
  9. PHOSLO [Concomitant]
  10. GEMFIBROZIL (GEMTBROZIL) [Concomitant]
  11. WELCHOL (COLESVELAM HYDROCHLORIDE) [Concomitant]
  12. LASIX [Concomitant]
  13. PLAVIX (PRAVASTATIN SODIUM) [Concomitant]
  14. METOPROLOL TARTRATE [Concomitant]
  15. ASPIRIN [Concomitant]
  16. VICODIN [Concomitant]
  17. SENOKOT [Concomitant]
  18. NPH INSULIN (INSULIN INJECTON, ISOPHANE) [Concomitant]

REACTIONS (3)
  - COMPLICATIONS OF TRANSPLANTED KIDNEY [None]
  - HAEMODIALYSIS [None]
  - RENAL TUBULAR NECROSIS [None]
